FAERS Safety Report 9433843 (Version 1)
Quarter: 2013Q3

REPORT INFORMATION
  Report Type: Spontaneous
  Country: US (occurrence: US)
  Receive Date: 20130731
  Receipt Date: 20130731
  Transmission Date: 20140515
  Serious: No
  Sender: FDA-Public Use
  Company Number: US-ASTRAZENECA-2013SE49605

PATIENT
  Sex: 0

DRUGS (4)
  1. SEROQUEL UNSPECIFIED [Suspect]
     Indication: BIPOLAR DISORDER
     Route: 048
  2. SEROQUEL UNSPECIFIED [Suspect]
     Indication: DEPRESSION
     Route: 048
  3. SEROQUEL UNSPECIFIED [Suspect]
     Indication: BIPOLAR DISORDER
     Route: 048
  4. SEROQUEL UNSPECIFIED [Suspect]
     Indication: DEPRESSION
     Route: 048

REACTIONS (1)
  - Drug level [Unknown]
